FAERS Safety Report 8888593 (Version 2)
Quarter: 2012Q4

REPORT INFORMATION
  Report Type: 
  Country: IE (occurrence: IE)
  Receive Date: 20121106
  Receipt Date: 20121116
  Transmission Date: 20130627
  Serious: Yes (Other)
  Sender: FDA-Public Use
  Company Number: IE-PFIZER INC-2012273289

PATIENT
  Age: 78 Year
  Sex: Female

DRUGS (6)
  1. ECALTA [Suspect]
     Indication: FUNGAL INFECTION
     Dosage: 200 mg, loading dose
     Route: 042
     Dates: start: 20121008
  2. AMLODIPINE [Concomitant]
     Indication: HYPERTENSION
     Dosage: long term use
     Route: 048
  3. LACTULOSE [Concomitant]
     Indication: CONSTIPATION
     Route: 048
  4. TAZOCIN [Concomitant]
     Indication: INFECTION
     Dosage: 4.5 g, 3x/day
     Route: 042
     Dates: start: 20121001, end: 20121010
  5. PARACETAMOL [Concomitant]
     Indication: ANALGESIC THERAPY
     Dosage: 1 g, 4x/day
     Route: 048
     Dates: start: 20120929
  6. CLEXANE [Concomitant]
     Indication: PROPHYLAXIS
     Dosage: 40 mg, 1x/day
     Route: 058
     Dates: start: 20120929

REACTIONS (3)
  - Anaphylactic reaction [Recovered/Resolved]
  - Dyspnoea [Recovered/Resolved]
  - Anxiety [Recovered/Resolved]
